FAERS Safety Report 18306521 (Version 2)
Quarter: 2020Q4

REPORT INFORMATION
  Report Type: Spontaneous
  Country: US (occurrence: US)
  Receive Date: 20200924
  Receipt Date: 20201002
  Transmission Date: 20210113
  Serious: No
  Sender: FDA-Public Use
  Company Number: US-ALNYLAM PHARMACEUTICALS, INC.-ALN-2020-001679

PATIENT

DRUGS (1)
  1. GIVLAARI [Suspect]
     Active Substance: GIVOSIRAN SODIUM
     Indication: PORPHYRIA ACUTE
     Route: 058

REACTIONS (7)
  - Unevaluable event [Unknown]
  - Vomiting [Unknown]
  - Ear pain [Unknown]
  - Feeling abnormal [Unknown]
  - Body temperature increased [Unknown]
  - Oropharyngeal pain [Unknown]
  - Headache [Unknown]
